FAERS Safety Report 21777994 (Version 2)
Quarter: 2023Q1

REPORT INFORMATION
  Report Type: Spontaneous
  Country: JP (occurrence: JP)
  Receive Date: 20221226
  Receipt Date: 20230116
  Transmission Date: 20230418
  Serious: Yes (Hospitalization, Other)
  Sender: FDA-Public Use
  Company Number: JP-Accord-292713

PATIENT
  Age: 6 Decade
  Sex: Male

DRUGS (4)
  1. DOCETAXEL [Suspect]
     Active Substance: DOCETAXEL
     Indication: Oesophageal carcinoma
  2. NEDAPLATIN [Suspect]
     Active Substance: NEDAPLATIN
     Indication: Oesophageal carcinoma
  3. GIMERACIL\OTERACIL\TEGAFUR [Suspect]
     Active Substance: GIMERACIL\OTERACIL\TEGAFUR
     Indication: Oesophageal carcinoma
  4. WARFARIN [Concomitant]
     Active Substance: WARFARIN
     Indication: Mitral valve incompetence
     Route: 048

REACTIONS (6)
  - Portal venous gas [Unknown]
  - Abdominal pain [Unknown]
  - Gastrointestinal necrosis [Unknown]
  - Flatulence [Unknown]
  - Peritoneal disorder [Unknown]
  - Pneumatosis intestinalis [Unknown]
